FAERS Safety Report 8145970-3 (Version None)
Quarter: 2012Q1

REPORT INFORMATION
  Report Type: 
  Country: None (occurrence: None)
  Receive Date: 20120217
  Receipt Date: 20110328
  Transmission Date: 20120608
  Serious: No
  Sender: FDA-Public Use
  Company Number: US-ABBOTT-11P-163-0714870-00

PATIENT
  Sex: Male
  Weight: 90.8 kg

DRUGS (4)
  1. MULTIPLE UNKNOWN [Concomitant]
     Indication: PRODUCT USED FOR UNKNOWN INDICATION
  2. SIMCOR [Suspect]
     Indication: BLOOD CHOLESTEROL INCREASED
     Dosage: 500/20 MG
     Dates: start: 20100701
  3. SIMCOR [Suspect]
     Dosage: 500/20MG 1 IN 1 D
  4. SIMCOR [Suspect]
     Indication: BLOOD CHOLESTEROL INCREASED
     Dosage: 1000/20MG

REACTIONS (5)
  - FLUSHING [None]
  - GASTRIC ULCER [None]
  - ERYTHEMA [None]
  - FEELING HOT [None]
  - BLOOD GLUCOSE INCREASED [None]
